FAERS Safety Report 13413452 (Version 2)
Quarter: 2017Q4

REPORT INFORMATION
  Report Type: Spontaneous
  Country: US (occurrence: US)
  Receive Date: 20170406
  Receipt Date: 20171123
  Transmission Date: 20180320
  Serious: No
  Sender: FDA-Public Use
  Company Number: US-JNJFOC-20170313148

PATIENT
  Age: 19 Year
  Sex: Male

DRUGS (6)
  1. RISPERDAL [Suspect]
     Active Substance: RISPERIDONE
     Indication: TOURETTE^S DISORDER
     Dosage: UNSPECIFIED DOSE AND 0.5 MG
     Route: 048
     Dates: start: 20040920, end: 20060323
  2. RISPERDAL [Suspect]
     Active Substance: RISPERIDONE
     Indication: TOURETTE^S DISORDER
     Dosage: UNSPECIFIED DOSE AND 0.5 MG
     Route: 048
     Dates: start: 20070111, end: 20081027
  3. RISPERDAL [Suspect]
     Active Substance: RISPERIDONE
     Indication: PANIC DISORDER
     Dosage: UNSPECIFIED DOSE AND 0.5 MG
     Route: 048
     Dates: start: 20040920, end: 20060323
  4. RISPERDAL [Suspect]
     Active Substance: RISPERIDONE
     Indication: PANIC DISORDER
     Dosage: UNSPECIFIED DOSE AND 0.5 MG
     Route: 048
     Dates: start: 20070111, end: 20081027
  5. RISPERDAL [Suspect]
     Active Substance: RISPERIDONE
     Indication: TOURETTE^S DISORDER
     Dosage: UNSPECIFIED DOSE AND 0.5 MG
     Route: 048
     Dates: start: 20090206, end: 20090326
  6. RISPERDAL [Suspect]
     Active Substance: RISPERIDONE
     Indication: PANIC DISORDER
     Dosage: UNSPECIFIED DOSE AND 0.5 MG
     Route: 048
     Dates: start: 20090206, end: 20090326

REACTIONS (4)
  - Gynaecomastia [Unknown]
  - Product use in unapproved indication [Unknown]
  - Emotional disorder [Unknown]
  - Off label use [Unknown]

NARRATIVE: CASE EVENT DATE: 20040920
